FAERS Safety Report 23164693 (Version 1)
Quarter: 2023Q4

REPORT INFORMATION
  Report Type: Spontaneous
  Country: US (occurrence: None)
  Receive Date: 20231108
  Receipt Date: 20231108
  Transmission Date: 20240110
  Serious: No
  Sender: FDA-Public Use
  Company Number: None

PATIENT
  Age: 61 Year
  Sex: Female
  Weight: 74.25 kg

DRUGS (1)
  1. KEVZARA [Suspect]
     Active Substance: SARILUMAB
     Indication: Rheumatoid arthritis
     Dates: start: 20231006, end: 20231103

REACTIONS (3)
  - Aphthous ulcer [None]
  - Abdominal pain upper [None]
  - Gastrointestinal pain [None]

NARRATIVE: CASE EVENT DATE: 20231025
